FAERS Safety Report 24825590 (Version 1)
Quarter: 2025Q1

REPORT INFORMATION
  Report Type: Report from Study
  Country: EE (occurrence: EE)
  Receive Date: 20250109
  Receipt Date: 20250109
  Transmission Date: 20250409
  Serious: Yes (Life-Threatening, Hospitalization, Other)
  Sender: SANDOZ
  Company Number: EE-JAZZ PHARMACEUTICALS-2024-EE-000360

PATIENT
  Age: 62 Year
  Sex: Male
  Weight: 80 kg

DRUGS (8)
  1. CAPECITABINE [Suspect]
     Active Substance: CAPECITABINE
     Indication: Adenocarcinoma gastric
     Dosage: 750 MG/M2, BID
     Route: 048
     Dates: start: 20231128, end: 20231228
  2. OXALIPLATIN [Suspect]
     Active Substance: OXALIPLATIN
     Indication: Adenocarcinoma gastric
     Dosage: 130 MG/M2, Q3W, CYCLE 2, DAY 1
     Route: 042
     Dates: start: 20231128, end: 20231219
  3. ZANIDATAMAB [Suspect]
     Active Substance: ZANIDATAMAB
     Indication: Adenocarcinoma gastric
     Dosage: 2400 MG, Q3W, CYCLE 2, DAY 1
     Route: 042
     Dates: start: 20231128, end: 20231219
  4. DEXAMETHASONE [Concomitant]
     Active Substance: DEXAMETHASONE
     Indication: Premedication
     Dosage: 10 MG, QD
     Route: 065
     Dates: start: 20231219, end: 20231219
  5. POTASSIUM CHLORIDE [Concomitant]
     Active Substance: POTASSIUM CHLORIDE
     Indication: Hypokalaemia
     Dosage: 600 MG, TID
     Route: 065
     Dates: start: 20231219, end: 20240101
  6. LOPERAMIDE [Concomitant]
     Active Substance: LOPERAMIDE
     Indication: Prophylaxis against diarrhoea
     Dosage: 4 MG, BID, CYCLE 2, DAY 7
     Route: 048
     Dates: start: 20231219, end: 20231225
  7. CLEMASTINE FUMARATE [Concomitant]
     Active Substance: CLEMASTINE FUMARATE
     Indication: Premedication
     Dosage: 2 MG, QD
     Route: 065
     Dates: start: 20231219, end: 20231219
  8. ZOFRAN [Concomitant]
     Active Substance: ONDANSETRON HYDROCHLORIDE
     Indication: Premedication
     Dosage: 8 MG, QD
     Route: 042
     Dates: start: 20231219, end: 20231219

REACTIONS (2)
  - Diarrhoea [Recovered/Resolved]
  - Thrombocytopenia [Recovered/Resolved]

NARRATIVE: CASE EVENT DATE: 20231229
